FAERS Safety Report 13639960 (Version 1)
Quarter: 2017Q2

REPORT INFORMATION
  Report Type: Spontaneous
  Country: US (occurrence: US)
  Receive Date: 20170609
  Receipt Date: 20170609
  Transmission Date: 20170830
  Serious: No
  Sender: FDA-Public Use
  Company Number: US-ROCHE-1412230

PATIENT
  Sex: Female

DRUGS (9)
  1. DARVOCET [Concomitant]
     Active Substance: ACETAMINOPHEN\PROPOXYPHENE HYDROCHLORIDE
     Indication: PAIN
     Dosage: AS NEEDED UP TO 2-3
     Route: 065
  2. KLONOPIN [Suspect]
     Active Substance: CLONAZEPAM
     Indication: MIGRAINE
     Dosage: 1.5 AT 1030 AND 1 BEFORE BED (16-17 YRS)
     Route: 065
  3. DEPAKOTE [Concomitant]
     Active Substance: DIVALPROEX SODIUM
  4. ZOMIG [Concomitant]
     Active Substance: ZOLMITRIPTAN
  5. DEMEROL [Concomitant]
     Active Substance: MEPERIDINE HYDROCHLORIDE
  6. TEGRETOL [Concomitant]
     Active Substance: CARBAMAZEPINE
  7. PERCOCET [Concomitant]
     Active Substance: ACETAMINOPHEN\OXYCODONE HYDROCHLORIDE
     Indication: PAIN
     Dosage: AS NEEDED STARTING WITH HALF
     Route: 065
  8. KLONOPIN [Suspect]
     Active Substance: CLONAZEPAM
     Indication: ANXIETY DISORDER
  9. VALIUM [Suspect]
     Active Substance: DIAZEPAM
     Indication: ANXIETY
     Dosage: FOR 20 YEARS
     Route: 065

REACTIONS (10)
  - Hypertension [Unknown]
  - Pain [Unknown]
  - Abdominal discomfort [Not Recovered/Not Resolved]
  - Infection [Unknown]
  - Malaise [Unknown]
  - Drug ineffective [Unknown]
  - Anxiety [Unknown]
  - Diarrhoea [Unknown]
  - Sinusitis [Unknown]
  - Fatigue [Unknown]
